FAERS Safety Report 6983196-7 (Version None)
Quarter: 2010Q3

REPORT INFORMATION
  Report Type: 
  Country: None (occurrence: None)
  Receive Date: 20100910
  Receipt Date: 20100824
  Transmission Date: 20110219
  Serious: Yes (Hospitalization, Other)
  Sender: FDA-Public Use
  Company Number: JPI-P-009668

PATIENT
  Age: 36 Year
  Sex: Female
  Weight: 56.246 kg

DRUGS (6)
  1. XYREM [Suspect]
     Indication: NARCOLEPSY
     Dosage: SEE IMAGE
     Route: 048
     Dates: start: 20090101, end: 20090101
  2. XYREM [Suspect]
     Indication: NARCOLEPSY
     Dosage: SEE IMAGE
     Route: 048
     Dates: start: 20090128, end: 20090101
  3. XYREM [Suspect]
     Indication: NARCOLEPSY
     Dosage: SEE IMAGE
     Route: 048
     Dates: start: 20090114, end: 20090127
  4. XYREM [Suspect]
     Indication: NARCOLEPSY
     Dosage: SEE IMAGE
     Route: 048
     Dates: start: 20090101
  5. UNSPECIFIED CONCOMITANT MEDICATIONS [Concomitant]
  6. IMMUNE GLOBULIN NOS [Concomitant]

REACTIONS (5)
  - AGITATION [None]
  - DEVICE RELATED SEPSIS [None]
  - IRRITABILITY [None]
  - NIGHT SWEATS [None]
  - PNEUMONIA MYCOPLASMAL [None]
